FAERS Safety Report 20791699 (Version 2)
Quarter: 2022Q2

REPORT INFORMATION
  Report Type: Spontaneous
  Country: IT (occurrence: IT)
  Receive Date: 20220505
  Receipt Date: 20220512
  Transmission Date: 20220721
  Serious: Yes (Other)
  Sender: FDA-Public Use
  Company Number: IT-TEVA-2022-IT-2033147

PATIENT
  Age: 63 Year
  Sex: Female

DRUGS (6)
  1. CISPLATIN [Suspect]
     Active Substance: CISPLATIN
     Indication: Vaginal adenocarcinoma
     Dosage: CYCLICAL, 50 MG/M2 ONCE A WEEK
     Route: 065
     Dates: start: 2017
  2. EVEROLIMUS [Suspect]
     Active Substance: EVEROLIMUS
     Indication: Vaginal adenocarcinoma
     Dosage: 10 MILLIGRAM DAILY;
     Route: 065
     Dates: start: 201908, end: 20201117
  3. NAVELBINE [Suspect]
     Active Substance: VINORELBINE TARTRATE
     Indication: Vaginal adenocarcinoma
     Dosage: CYCLICAL, 240 MG ONCE IN 14 DAYS
     Route: 048
     Dates: start: 20180915
  4. TAXOL [Suspect]
     Active Substance: PACLITAXEL
     Indication: Vaginal adenocarcinoma
     Dosage: CYCLICAL, 90 MG/M2 ONCE A WEEK
     Route: 065
     Dates: start: 2017
  5. TAXOL [Suspect]
     Active Substance: PACLITAXEL
     Indication: Vaginal adenocarcinoma
  6. NIVOLUMAB [Suspect]
     Active Substance: NIVOLUMAB
     Indication: Vaginal adenocarcinoma
     Dosage: CYCLICAL, 240 MG EVERY 14 DAYS
     Route: 065
     Dates: start: 20180915

REACTIONS (2)
  - Pneumonitis [Recovering/Resolving]
  - Drug resistance [Unknown]

NARRATIVE: CASE EVENT DATE: 20190101
